FAERS Safety Report 4959077-7 (Version None)
Quarter: 2006Q1

REPORT INFORMATION
  Report Type: 
  Country: None (occurrence: None)
  Receive Date: 20060331
  Receipt Date: 20060328
  Transmission Date: 20060701
  Serious: Yes (Other)
  Sender: FDA-Public Use
  Company Number: US-BRACCO-BDI-008069

PATIENT
  Sex: Female

DRUGS (1)
  1. CHOLETEC [Suspect]
     Route: 042
     Dates: start: 20060324, end: 20060324

REACTIONS (1)
  - HYPERSENSITIVITY [None]
